FAERS Safety Report 20879350 (Version 1)
Quarter: 2022Q2

REPORT INFORMATION
  Report Type: Spontaneous
  Country: RU (occurrence: RU)
  Receive Date: 20220526
  Receipt Date: 20220526
  Transmission Date: 20220721
  Serious: Yes (Other)
  Sender: FDA-Public Use
  Company Number: RU-Merck Healthcare KGaA-9323313

PATIENT
  Sex: Male

DRUGS (8)
  1. ERBITUX [Suspect]
     Active Substance: CETUXIMAB
     Indication: Colon cancer metastatic
     Dosage: UNK UNK, UNKNOWN
     Route: 065
     Dates: start: 201911
  2. ERBITUX [Suspect]
     Active Substance: CETUXIMAB
     Dosage: UNK UNK, UNKNOWN (DOSE DECREASED)
     Route: 065
  3. OXALIPLATIN [Concomitant]
     Active Substance: OXALIPLATIN
     Indication: Colon cancer metastatic
     Dosage: UNK
     Dates: start: 201911
  4. OXALIPLATIN [Concomitant]
     Active Substance: OXALIPLATIN
     Dosage: DOSE REDUCED
  5. LEUCOVORIN [Concomitant]
     Active Substance: LEUCOVORIN
     Indication: Colon cancer metastatic
     Dosage: UNK
     Dates: start: 201911
  6. LEUCOVORIN [Concomitant]
     Active Substance: LEUCOVORIN
     Dosage: DOSE REDUCED
  7. FLUOROURACIL [Concomitant]
     Active Substance: FLUOROURACIL
     Indication: Colon cancer metastatic
     Dosage: UNK
     Dates: start: 201911
  8. FLUOROURACIL [Concomitant]
     Active Substance: FLUOROURACIL
     Dosage: DOSE REDUCED

REACTIONS (2)
  - Polyneuropathy [Unknown]
  - Thrombocytopenia [Not Recovered/Not Resolved]
